FAERS Safety Report 7973892-7 (Version None)
Quarter: 2011Q4

REPORT INFORMATION
  Report Type: 
  Country: None (occurrence: None)
  Receive Date: 20111213
  Receipt Date: 20111129
  Transmission Date: 20120403
  Serious: Yes (Disabling)
  Sender: FDA-Public Use
  Company Number: GB-CELGENEUS-167-20785-11102046

PATIENT
  Age: 69 Year
  Sex: Male

DRUGS (5)
  1. CYCLOPHOSPHAMIDE [Suspect]
     Dosage: 500 MILLIGRAM
     Route: 048
     Dates: start: 20110929, end: 20111014
  2. CO-AMILOFRUSE [Concomitant]
     Route: 065
  3. THALIDOMIDE [Suspect]
     Dosage: 100 MILLIGRAM
     Route: 048
     Dates: start: 20110929, end: 20111014
  4. DEXAMETHASONE [Suspect]
     Dosage: 20 MILLIGRAM
     Route: 048
     Dates: start: 20110929, end: 20111014
  5. BENDROFLUAZIDE [Concomitant]
     Route: 065

REACTIONS (2)
  - ERYTHEMA [None]
  - RASH [None]
